FAERS Safety Report 7045255-2 (Version None)
Quarter: 2010Q4

REPORT INFORMATION
  Report Type: 
  Country: None (occurrence: None)
  Receive Date: 20101014
  Receipt Date: 20100824
  Transmission Date: 20110411
  Serious: No
  Sender: FDA-Public Use
  Company Number: US-ALLERGAN-1009811US

PATIENT
  Age: 41 Year
  Sex: Female

DRUGS (2)
  1. LATISSE [Suspect]
     Indication: GROWTH OF EYELASHES
     Dosage: 1 GTT, QHS
     Route: 061
     Dates: start: 20090901, end: 20100401
  2. LEVOXYL [Concomitant]
     Indication: HYPOTHYROIDISM
     Dosage: 0.075 MG, UNK

REACTIONS (4)
  - HAIR GROWTH ABNORMAL [None]
  - HYPERSENSITIVITY [None]
  - MADAROSIS [None]
  - RASH [None]
